FAERS Safety Report 10420984 (Version 1)
Quarter: 2014Q3

REPORT INFORMATION
  Report Type: Spontaneous
  Country: US (occurrence: None)
  Receive Date: 20140715
  Receipt Date: 20140715
  Transmission Date: 20150326
  Serious: Yes (Other)
  Sender: FDA-Public Use
  Company Number: NPIL/SEV/H/2013/61

PATIENT
  Sex: Female

DRUGS (1)
  1. SEVOFLURANE. [Suspect]
     Active Substance: SEVOFLURANE
     Indication: ANAESTHESIA
     Dates: start: 20130215

REACTIONS (1)
  - Bronchospasm [None]

NARRATIVE: CASE EVENT DATE: 20130215
